FAERS Safety Report 5777123-8 (Version None)
Quarter: 2008Q2

REPORT INFORMATION
  Report Type: 
  Country: None (occurrence: None)
  Receive Date: 20080617
  Receipt Date: 20080617
  Transmission Date: 20081010
  Serious: Yes (Hospitalization)
  Sender: FDA-Public Use
  Company Number: None

PATIENT
  Sex: Female
  Weight: 51 kg

DRUGS (6)
  1. TRIMETHOPRIM + SULFAMETHOXAZOLE [Suspect]
     Indication: BACTERAEMIA
     Dosage: 2 DS TABLETS PO TID
     Route: 048
     Dates: start: 20080519, end: 20080528
  2. ACYCLOVIR SODIUM [Concomitant]
  3. FLUCONAZOLE [Concomitant]
  4. MAGNESIUM OXIDE [Concomitant]
  5. TACROLIMUS [Concomitant]
  6. MULTIVITAMINE [Concomitant]

REACTIONS (2)
  - HYPERKALAEMIA [None]
  - RENAL FAILURE ACUTE [None]
